FAERS Safety Report 6840406-4 (Version None)
Quarter: 2010Q3

REPORT INFORMATION
  Report Type: 
  Country: None (occurrence: None)
  Receive Date: 20100714
  Receipt Date: 20100703
  Transmission Date: 20110219
  Serious: Yes (Hospitalization)
  Sender: FDA-Public Use
  Company Number: US-PFIZER INC-2010083184

PATIENT
  Sex: Female
  Weight: 50.3 kg

DRUGS (4)
  1. SUNITINIB MALATE [Suspect]
     Indication: LUNG NEOPLASM MALIGNANT
     Dosage: 25 MG, 1X/DAY
     Route: 048
     Dates: start: 20100301, end: 20100629
  2. MIRALAX [Concomitant]
     Dosage: UNK
     Dates: start: 20100430
  3. ZOFRAN [Concomitant]
     Dosage: UNK
     Dates: start: 20100405
  4. DARVOCET [Concomitant]
     Dosage: UNK
     Dates: start: 20100201

REACTIONS (1)
  - CHOLECYSTITIS [None]
